FAERS Safety Report 15264960 (Version 1)
Quarter: 2018Q4

REPORT INFORMATION
  Report Type: Spontaneous
  Country: JP (occurrence: JP)
  Receive Date: 20180810
  Receipt Date: 20180810
  Transmission Date: 20190204
  Serious: Yes (Hospitalization)
  Sender: FDA-Public Use
  Company Number: JP-TEVA-2018-JP-003799J

PATIENT
  Age: 93 Year
  Sex: Female

DRUGS (15)
  1. LANSOPRAZOLE OD [Concomitant]
     Active Substance: LANSOPRAZOLE
     Dosage: 15 MILLIGRAM DAILY;
     Route: 065
  2. BERAPROST SODIUM [Concomitant]
     Active Substance: BERAPROST SODIUM
     Dosage: 120 MICROGRAM DAILY;
     Route: 065
  3. CILOSTAZOL OD [Concomitant]
     Active Substance: CILOSTAZOL
     Dosage: 400 MILLIGRAM DAILY;
     Route: 065
  4. FERRUM [Concomitant]
     Active Substance: FERROUS FUMARATE
     Dosage: 100 MILLIGRAM DAILY;
     Route: 065
  5. ISOSORBIDE DINITRATE. [Concomitant]
     Active Substance: ISOSORBIDE DINITRATE
     Dosage: 40 MILLIGRAM DAILY;
     Route: 065
  6. ALUMINUM HYDROXIDE GEL/MAGNESIUM HYDROXIDE [Concomitant]
     Dosage: 40 ML DAILY;
     Route: 065
  7. CYANOCOBALAMIN. [Concomitant]
     Active Substance: CYANOCOBALAMIN
     Route: 065
  8. AMLODIPINE [Concomitant]
     Active Substance: AMLODIPINE BESYLATE
     Dosage: 5 MILLIGRAM DAILY;
     Route: 065
  9. ETHYL ICOSAPENTATE [Concomitant]
     Active Substance: ICOSAPENT ETHYL
     Dosage: 1800 MILLIGRAM DAILY;
     Route: 065
  10. AZILVA [Concomitant]
     Active Substance: AZILSARTAN KAMEDOXOMIL
     Dosage: 10 MILLIGRAM DAILY;
     Route: 048
  11. SPIRONOLACTONE. [Concomitant]
     Active Substance: SPIRONOLACTONE
     Dosage: 25 MILLIGRAM DAILY;
     Route: 065
  12. RACOL-NF [Concomitant]
     Dosage: 200 ML DAILY;
     Route: 065
  13. ALPROSTADIL INJECTION 10 MICROGRAMS TAKEDA TEVA [Suspect]
     Active Substance: ALPROSTADIL
     Indication: ARTERIAL OCCLUSIVE DISEASE
     Route: 041
  14. WARFARIN [Concomitant]
     Active Substance: WARFARIN
     Dosage: 2 MILLIGRAM DAILY;
     Route: 065
  15. FUROSEMIDE. [Concomitant]
     Active Substance: FUROSEMIDE
     Dosage: 20 MILLIGRAM DAILY;
     Route: 065

REACTIONS (3)
  - Physical deconditioning [Unknown]
  - Vascular skin disorder [Recovered/Resolved]
  - Product substitution issue [Unknown]
